FAERS Safety Report 10550521 (Version 3)
Quarter: 2014Q4

REPORT INFORMATION
  Report Type: Report from Study
  Country: US (occurrence: US)
  Receive Date: 20141029
  Receipt Date: 20141113
  Transmission Date: 20150529
  Serious: Yes (Hospitalization, Other)
  Sender: FDA-Public Use
  Company Number: US-AMGEN INC.-USASL2014082870

PATIENT
  Age: 56 Year
  Sex: Male

DRUGS (13)
  1. DAYPRO [Concomitant]
     Active Substance: OXAPROZIN
     Dosage: 1200 MG, PER DAY
  2. SENOKOT [Concomitant]
     Active Substance: SENNOSIDES
     Dosage: 2 TABLETS DAILY AT BEDTIME
  3. THERAGRAN                          /01824401/ [Concomitant]
     Dosage: UNK, ONCE DAILY
  4. FERROUS SULFATE [Concomitant]
     Active Substance: FERROUS SULFATE\FERROUS SULFATE, DRIED
     Dosage: 325 MG, DAILY WITH FOOD
  5. PEPCID                             /00305201/ [Concomitant]
     Dosage: 40 UNK, PER DAY
  6. ZOCOR [Concomitant]
     Active Substance: SIMVASTATIN
     Dosage: UNK
  7. ARAVA [Concomitant]
     Active Substance: LEFLUNOMIDE
     Dosage: 20 MG, DAILY
  8. LASIX [Concomitant]
     Active Substance: FUROSEMIDE
     Dosage: UNK
  9. LEFLUNOMIDE. [Concomitant]
     Active Substance: LEFLUNOMIDE
     Dosage: 20 MG, QD
     Route: 065
     Dates: start: 200208
  10. OXYCONTIN [Concomitant]
     Active Substance: OXYCODONE HYDROCHLORIDE
     Dosage: UNK
  11. ENBREL [Suspect]
     Active Substance: ETANERCEPT
     Indication: RHEUMATOID ARTHRITIS
     Dosage: 50 MG, QWK
     Route: 065
     Dates: start: 20071012
  12. PRINIVIL [Concomitant]
     Active Substance: LISINOPRIL
     Dosage: 5 MG, DAILY
  13. CYTOTEC [Concomitant]
     Active Substance: MISOPROSTOL
     Dosage: 200 MU, ONCE DAILY

REACTIONS (5)
  - Knee arthroplasty [Recovered/Resolved]
  - Staphylococcal infection [Unknown]
  - Ill-defined disorder [Unknown]
  - Device related infection [Unknown]
  - Femur fracture [Unknown]

NARRATIVE: CASE EVENT DATE: 20090325
